FAERS Safety Report 13815350 (Version 1)
Quarter: 2017Q3

REPORT INFORMATION
  Report Type: Spontaneous
  Country: US (occurrence: US)
  Receive Date: 20170729
  Receipt Date: 20170729
  Transmission Date: 20171127
  Serious: No
  Sender: FDA-Public Use
  Company Number: None

PATIENT
  Age: 63 Year
  Sex: Female
  Weight: 75.6 kg

DRUGS (1)
  1. CYMBALTA [Suspect]
     Active Substance: DULOXETINE HYDROCHLORIDE

REACTIONS (21)
  - Suicidal ideation [None]
  - Panic attack [None]
  - Impatience [None]
  - Sleep disorder [None]
  - Anger [None]
  - Depersonalisation/derealisation disorder [None]
  - Crying [None]
  - Clumsiness [None]
  - Abnormal behaviour [None]
  - Dizziness [None]
  - Tinnitus [None]
  - Irritability [None]
  - Weight increased [None]
  - Derealisation [None]
  - Nightmare [None]
  - Depression [None]
  - Nausea [None]
  - Appetite disorder [None]
  - Confusional state [None]
  - Vomiting [None]
  - Anxiety [None]

NARRATIVE: CASE EVENT DATE: 20170519
